FAERS Safety Report 9343844 (Version 2)
Quarter: 2013Q2

REPORT INFORMATION
  Report Type: Spontaneous
  Country: JP (occurrence: JP)
  Receive Date: 20130612
  Receipt Date: 20130627
  Transmission Date: 20140414
  Serious: No
  Sender: FDA-Public Use
  Company Number: JP-ROCHE-1212151

PATIENT
  Age: 71 Year
  Sex: Female
  Weight: 53 kg

DRUGS (4)
  1. AVASTIN [Suspect]
     Indication: MALIGNANT PERITONEAL NEOPLASM
     Dosage: SIX COURSES
     Route: 041
     Dates: start: 20110714, end: 20111103
  2. AVASTIN [Suspect]
     Indication: MALIGNANT PERITONEAL NEOPLASM
     Route: 041
     Dates: start: 2011
  3. PACLITAXEL [Concomitant]
     Indication: MALIGNANT PERITONEAL NEOPLASM
     Dosage: SIX COURSES
     Route: 041
     Dates: start: 20110714, end: 20111103
  4. CARBOPLATIN [Concomitant]
     Indication: MALIGNANT PERITONEAL NEOPLASM
     Dosage: SIX COURSES
     Route: 041
     Dates: start: 20110714, end: 20111103

REACTIONS (3)
  - Renal disorder [Not Recovered/Not Resolved]
  - Hypertension [Recovering/Resolving]
  - Protein urine [Unknown]
